FAERS Safety Report 10438855 (Version 1)
Quarter: 2014Q3

REPORT INFORMATION
  Report Type: Spontaneous
  Country: CN (occurrence: CN)
  Receive Date: 20140908
  Receipt Date: 20140908
  Transmission Date: 20150326
  Serious: Yes (Hospitalization)
  Sender: FDA-Public Use
  Company Number: PHHY2014CN109657

PATIENT

DRUGS (1)
  1. METHYLPREDNISOLONE [Suspect]
     Active Substance: METHYLPREDNISOLONE
     Indication: LIVER TRANSPLANT REJECTION

REACTIONS (6)
  - Diabetic hyperosmolar coma [Recovered/Resolved]
  - Blood gases abnormal [Recovered/Resolved]
  - Glucose urine present [Recovered/Resolved]
  - Blood glucose increased [Recovered/Resolved]
  - Blood osmolarity increased [Recovered/Resolved]
  - Altered state of consciousness [Recovered/Resolved]
